FAERS Safety Report 14595211 (Version 1)
Quarter: 2018Q1

REPORT INFORMATION
  Report Type: Spontaneous
  Country: US (occurrence: US)
  Receive Date: 20180302
  Receipt Date: 20180302
  Transmission Date: 20180509
  Serious: No
  Sender: FDA-Public Use
  Company Number: US-ACTELION-A-NJ2017-159164

PATIENT
  Age: 64 Year
  Sex: Female

DRUGS (4)
  1. UPTRAVI [Suspect]
     Active Substance: SELEXIPAG
     Indication: PULMONARY ARTERIAL HYPERTENSION
     Dosage: 200 MCG, BID
     Route: 048
     Dates: start: 20161201
  2. OXYGEN. [Concomitant]
     Active Substance: OXYGEN
     Dosage: 3 L, AT NIGHT
  3. OXYGEN. [Concomitant]
     Active Substance: OXYGEN
     Dosage: 4 L, AT NIGHT
  4. OPSUMIT [Suspect]
     Active Substance: MACITENTAN
     Indication: PULMONARY ARTERIAL HYPERTENSION
     Dosage: 10 MG, QD
     Route: 048
     Dates: start: 20160826

REACTIONS (4)
  - Chest pain [Unknown]
  - Dyspnoea [Unknown]
  - Headache [Unknown]
  - Cough [Unknown]
